FAERS Safety Report 9722984 (Version 2)
Quarter: 2013Q4

REPORT INFORMATION
  Report Type: Spontaneous
  Country: DE (occurrence: DE)
  Receive Date: 20131202
  Receipt Date: 20131202
  Transmission Date: 20140711
  Serious: Yes (Other)
  Sender: FDA-Public Use
  Company Number: PHHY2013DE080104

PATIENT
  Sex: Male

DRUGS (19)
  1. LUCENTIS [Suspect]
     Indication: AGE-RELATED MACULAR DEGENERATION
     Dosage: LEFT EYE
     Dates: start: 200804
  2. LUCENTIS [Interacting]
     Dosage: RIGHT EYE
     Dates: start: 201201
  3. LUCENTIS [Interacting]
     Dosage: LEFT EYE
     Dates: start: 201208
  4. LUCENTIS [Interacting]
     Dosage: RIGHT EYE
     Dates: start: 201309
  5. FLUVASTATIN [Interacting]
     Indication: LIPIDS INCREASED
     Dosage: 20 MG, DAILY
     Dates: start: 201005
  6. PANTOPRAZOLE [Concomitant]
     Dosage: 40 MG, IF REQUIRED
  7. AMIODARONE [Concomitant]
     Dosage: 200 MG, DAILY EXCEPT SUNDAY
  8. ASS PROTECTID [Concomitant]
     Dosage: 100 MG, DAILY
  9. BLOPRESS [Concomitant]
     Dosage: 4 MG UPTO ONCE DAILY
  10. ACTONEL PLUS CALCIUM D [Concomitant]
     Dosage: WEEKLY
  11. DULCOLAX [Concomitant]
     Dosage: IF REQUIRED
  12. LACTULOSE [Concomitant]
     Dosage: IF REQUIRED
  13. LAIF [Concomitant]
     Dosage: 900 MG, DAILY
  14. KEPPRA [Concomitant]
     Dosage: 1750 MG, (750 MG IN THE MORNING, 1000 IN THE EVENING)
  15. VIMPAT [Concomitant]
     Dosage: 125 MG, TWICE DAILY
  16. TAVOR (LORAZEPAM) [Concomitant]
     Dosage: 2.5 MG, IF REQUIRED
  17. OCUVITE                            /01053801/ [Concomitant]
     Dosage: UP TO TWICE DAILY
  18. NOVALGIN//METAMIZOLE SODIUM [Concomitant]
     Dosage: IF REQUIRED
  19. LORMETAZEPAM [Concomitant]
     Indication: HICCUPS
     Dosage: IF REQUIRED

REACTIONS (2)
  - Visual acuity reduced [Unknown]
  - Drug interaction [Unknown]
